FAERS Safety Report 12590718 (Version 1)
Quarter: 2016Q3

REPORT INFORMATION
  Report Type: Spontaneous
  Country: KP (occurrence: KP)
  Receive Date: 20160726
  Receipt Date: 20160726
  Transmission Date: 20161109
  Serious: Yes (Hospitalization)
  Sender: FDA-Public Use
  Company Number: KP-GLENMARK PHARMACEUTICALS INC, USA.-2016GMK023704

PATIENT
  Age: 52 Year
  Sex: Male

DRUGS (6)
  1. METHYLPHENIDATE. [Concomitant]
     Active Substance: METHYLPHENIDATE
     Indication: COGNITIVE DISORDER
     Dosage: UNK
     Route: 065
  2. ROPINIROLE HYDROCHLORIDE. [Suspect]
     Active Substance: ROPINIROLE HYDROCHLORIDE
     Indication: COGNITIVE DISORDER
     Dosage: 0.25 MG, QD
     Route: 065
  3. MODAFINIL. [Concomitant]
     Active Substance: MODAFINIL
     Indication: COGNITIVE DISORDER
     Dosage: UNK
     Route: 065
  4. CARBIDOPA/LEVODOPA [Concomitant]
     Active Substance: CARBIDOPA\LEVODOPA
     Indication: PRODUCT USED FOR UNKNOWN INDICATION
     Dosage: UNK
     Route: 065
  5. AMANTADINE [Concomitant]
     Active Substance: AMANTADINE
     Indication: COGNITIVE DISORDER
     Dosage: UNK
     Route: 065
  6. ROPINIROLE HYDROCHLORIDE. [Suspect]
     Active Substance: ROPINIROLE HYDROCHLORIDE
     Dosage: 0.375 MG, QD
     Route: 065

REACTIONS (1)
  - Serotonin syndrome [Recovered/Resolved]
